FAERS Safety Report 4665773-1 (Version None)
Quarter: 2005Q2

REPORT INFORMATION
  Report Type: 
  Country: None (occurrence: None)
  Receive Date: 20050517
  Receipt Date: 20050517
  Transmission Date: 20051028
  Serious: Yes (Hospitalization)
  Sender: FDA-Public Use
  Company Number: None

PATIENT
  Sex: Female

DRUGS (9)
  1. XELODA [Suspect]
     Indication: RECTAL CANCER
     Dosage: 1450 MG BID AM + PM
     Dates: start: 20050418, end: 20050511
  2. RADIATION THERAPY [Concomitant]
  3. CARDIZEM [Concomitant]
  4. MAXZIDE [Concomitant]
  5. AMBIEN [Concomitant]
  6. LORAZEPAM [Concomitant]
  7. K-CLOR [Concomitant]
  8. LAXATIVE [Concomitant]
  9. CRYSTALLINE VIT B12 INJ [Concomitant]

REACTIONS (5)
  - ASTHENIA [None]
  - ATRIAL FIBRILLATION [None]
  - DYSARTHRIA [None]
  - MENTAL STATUS CHANGES [None]
  - THROMBOEMBOLIC STROKE [None]
